FAERS Safety Report 8313415-6 (Version None)
Quarter: 2012Q2

REPORT INFORMATION
  Report Type: 
  Country: None (occurrence: None)
  Receive Date: 20120426
  Receipt Date: 20120419
  Transmission Date: 20120825
  Serious: Yes (Hospitalization, Disabling, Other)
  Sender: FDA-Public Use
  Company Number: IE-JNJFOC-20111104144

PATIENT
  Sex: Male

DRUGS (1)
  1. SIMPONI [Suspect]
     Indication: PSORIATIC ARTHROPATHY
     Route: 058
     Dates: start: 20111011, end: 20111011

REACTIONS (6)
  - RHEUMATOID ARTHRITIS [None]
  - CARDIAC INFECTION [None]
  - PULMONARY FIBROSIS [None]
  - RASH GENERALISED [None]
  - PERICARDITIS [None]
  - C-REACTIVE PROTEIN INCREASED [None]
